FAERS Safety Report 12309021 (Version 1)
Quarter: 2016Q2

REPORT INFORMATION
  Report Type: Spontaneous
  Country: US (occurrence: US)
  Receive Date: 20160427
  Receipt Date: 20160427
  Transmission Date: 20160815
  Serious: Yes (Other)
  Sender: FDA-Public Use
  Company Number: US-AMGEN-USASP2016050566

PATIENT
  Age: 69 Year
  Sex: Female

DRUGS (1)
  1. SENSIPAR [Suspect]
     Active Substance: CINACALCET HYDROCHLORIDE
     Indication: HYPOTHYROIDISM
     Dosage: 30 MG, BID
     Route: 048

REACTIONS (4)
  - Atrial fibrillation [Unknown]
  - Blood calcium increased [Unknown]
  - Thyroid disorder [Unknown]
  - Off label use [Unknown]
